FAERS Safety Report 4472785-X (Version None)
Quarter: 2004Q4

REPORT INFORMATION
  Report Type: 
  Country: None (occurrence: None)
  Receive Date: 20041012
  Receipt Date: 20041012
  Transmission Date: 20050328
  Serious: Yes (Other)
  Sender: FDA-Public Use
  Company Number: None

PATIENT
  Age: 13 Year
  Sex: Female
  Weight: 56.6996 kg

DRUGS (2)
  1. LEXAPRO [Suspect]
     Indication: MAJOR DEPRESSION
     Dosage: 10 MG QD ORAL
     Route: 048
     Dates: start: 20040805, end: 20041009
  2. SEROQUEL [Concomitant]

REACTIONS (2)
  - AGITATION [None]
  - PYROMANIA [None]
